FAERS Safety Report 10151425 (Version 2)
Quarter: 2014Q2

REPORT INFORMATION
  Report Type: Report from Study
  Country: US (occurrence: US)
  Receive Date: 20140503
  Receipt Date: 20140503
  Transmission Date: 20141212
  Serious: Yes (Hospitalization)
  Sender: FDA-Public Use
  Company Number: PHEH1999US03878

PATIENT
  Age: 75 Year
  Sex: Male

DRUGS (6)
  1. COMTAN [Suspect]
     Indication: PARKINSON^S DISEASE
     Dosage: 1000 MG, DAILY (5 DF/ DAY)
     Route: 048
     Dates: start: 19941206, end: 19971216
  2. SINEMET [Suspect]
     Indication: PARKINSON^S DISEASE
     Dosage: 1000 MG, DAILY
     Route: 048
     Dates: start: 19950519
  3. SINEMET [Suspect]
     Dosage: 200 MG, DAILY
     Route: 048
     Dates: start: 19950526
  4. EFFEXOR [Concomitant]
     Indication: DEPRESSION
     Dosage: 10 MG, DAILY
     Dates: start: 19950527
  5. EFFEXOR [Concomitant]
     Indication: CONSTIPATION
     Dosage: 75 MG, DAILY
     Dates: start: 19960403
  6. EFFEXOR [Concomitant]
     Indication: HYPERTENSION
     Dosage: UNK UKN, DAILY
     Dates: start: 19960502

REACTIONS (2)
  - Depression [Recovered/Resolved]
  - Agitation [Recovered/Resolved]
